FAERS Safety Report 4869612-5 (Version None)
Quarter: 2005Q4

REPORT INFORMATION
  Report Type: 
  Country: None (occurrence: None)
  Receive Date: 20051227
  Receipt Date: 20051219
  Transmission Date: 20060501
  Serious: Yes (Other)
  Sender: FDA-Public Use
  Company Number: ESWYE044311OCT05

PATIENT
  Age: 54 Year
  Sex: Male

DRUGS (4)
  1. VENLAFAXINE HCL [Suspect]
     Indication: MAJOR DEPRESSION
     Dosage: 225 MG 1X PER 1 DAY
     Route: 048
     Dates: start: 20020101
  2. DIAZEPAM [Concomitant]
  3. LORAZEPAM [Concomitant]
  4. ALCOHOL (ETHANOL) [Suspect]

REACTIONS (3)
  - ANAEMIA [None]
  - CHOLESTASIS [None]
  - CHRONIC HEPATITIS [None]
